FAERS Safety Report 8771746 (Version 7)
Quarter: 2013Q3

REPORT INFORMATION
  Report Type: Spontaneous
  Country: US (occurrence: US)
  Receive Date: 20120905
  Receipt Date: 20130905
  Transmission Date: 20140515
  Serious: Yes (Other)
  Sender: FDA-Public Use
  Company Number: US-PFIZER INC-2012210106

PATIENT
  Age: 29 Year
  Sex: Female

DRUGS (26)
  1. IBUPROFEN [Suspect]
     Dosage: 800 MG, 3X/DAY
     Route: 065
  2. ZOLOFT [Suspect]
     Indication: DEPRESSION
     Dosage: 100
     Route: 048
     Dates: start: 2006, end: 2010
  3. ZOLOFT [Suspect]
     Indication: ILL-DEFINED DISORDER
  4. EFFEXOR [Suspect]
     Indication: AFFECTIVE DISORDER
     Dosage: UNK
     Route: 048
  5. VISTARIL [Suspect]
     Indication: AFFECTIVE DISORDER
     Dosage: 25 MG, 3X/DAY
     Route: 048
     Dates: start: 20061111
  6. VISTARIL [Suspect]
     Indication: ANXIETY
  7. TOPAMAX [Suspect]
     Indication: MIGRAINE
     Dosage: 100 MG TO 300 MG DAILY
     Dates: start: 200509, end: 200902
  8. TOPAMAX [Suspect]
     Indication: CONVULSION
  9. TRAZODONE [Suspect]
     Indication: DEPRESSION
     Dosage: 100 MG AND 50 MG
     Route: 048
     Dates: start: 20051015
  10. TRAZODONE [Suspect]
     Dosage: 100 MG AND 50 MG
     Dates: start: 20051129
  11. TRAZODONE [Suspect]
     Dosage: 100 MG AND 50 MG
     Dates: start: 20060102
  12. TRAZODONE [Suspect]
     Dosage: 100 MG AND 50 MG
     Dates: start: 20070823
  13. TRAZODONE [Suspect]
     Dosage: 100 MG AND 50 MG
     Dates: start: 20070927
  14. MIRTAZAPINE [Suspect]
     Indication: DEPRESSION
     Dosage: UNK
     Route: 048
     Dates: start: 20060531
  15. MIRTAZAPINE [Suspect]
     Dosage: UNK
     Dates: start: 20060722
  16. MIRTAZAPINE [Suspect]
     Dosage: UNK
     Dates: start: 20060904
  17. METFORMIN [Suspect]
     Indication: TYPE 2 DIABETES MELLITUS
     Dosage: 500 MG, UNK
     Route: 048
  18. COLACE [Suspect]
     Dosage: UNK
     Route: 065
  19. OXYTOCIN [Suspect]
     Route: 042
  20. BRETHINE [Suspect]
     Route: 058
  21. FENTANYL [Suspect]
     Dosage: UNK
     Route: 008
  22. BUPIVACAINE [Suspect]
     Dosage: UNK
     Route: 008
  23. OPTINATE [Concomitant]
     Indication: VITAMIN SUPPLEMENTATION
     Dosage: UNK
     Route: 065
     Dates: start: 200611, end: 200706
  24. FOLIC ACID [Concomitant]
     Indication: VITAMIN SUPPLEMENTATION
     Dosage: UNK
     Route: 065
     Dates: start: 200610, end: 2007
  25. PRENATAL VITAMINS [Concomitant]
     Route: 048
  26. FERROUS SULFATE [Concomitant]
     Route: 065

REACTIONS (4)
  - Oligohydramnios [Unknown]
  - Epilepsy [Unknown]
  - Perineal injury [Unknown]
  - Emotional disorder [Unknown]
